FAERS Safety Report 9133000 (Version 1)
Quarter: 2013Q1

REPORT INFORMATION
  Report Type: Spontaneous
  Country: US (occurrence: US)
  Receive Date: 20130301
  Receipt Date: 20130301
  Transmission Date: 20140127
  Serious: Yes (Other)
  Sender: FDA-Public Use
  Company Number: US-009507513-1302USA012857

PATIENT
  Sex: Female

DRUGS (20)
  1. ALENDRONATE SODIUM [Suspect]
     Indication: OSTEOPOROSIS
     Dosage: 70 MG, QW
     Route: 048
     Dates: start: 200802
  2. BETAMETHASONE [Concomitant]
  3. CARBIDOPA (+) LEVODOPA [Concomitant]
  4. NASONEX [Concomitant]
  5. SIMVASTATIN [Concomitant]
  6. CALCIUM (UNSPECIFIED) [Concomitant]
  7. VITAMIN D (UNSPECIFIED) [Concomitant]
  8. ADVAIR [Concomitant]
  9. ASPIRIN [Concomitant]
  10. OMEGA-3 MARINE TRIGLYCERIDES [Concomitant]
  11. FLAXSEED [Concomitant]
  12. FOLIC ACID [Concomitant]
  13. LANSOPRAZOLE [Concomitant]
  14. MAGNESIUM (UNSPECIFIED) [Concomitant]
  15. OXYBUTYNIN [Concomitant]
  16. PROAIR (ALBUTEROL SULFATE) [Concomitant]
  17. SEMPREX [Concomitant]
  18. TUMS [Concomitant]
  19. DICLOFENAC [Concomitant]
  20. COLACE [Concomitant]

REACTIONS (1)
  - Osteonecrosis of jaw [Unknown]
